FAERS Safety Report 4953153-0 (Version None)
Quarter: 2006Q1

REPORT INFORMATION
  Report Type: 
  Country: None (occurrence: None)
  Receive Date: 20060324
  Receipt Date: 20050112
  Transmission Date: 20060701
  Serious: Yes (Hospitalization, Disabling)
  Sender: FDA-Public Use
  Company Number: US-MERCK-0501USA01836

PATIENT
  Age: 49 Year
  Sex: Female
  Weight: 114 kg

DRUGS (8)
  1. VIOXX [Suspect]
     Indication: ARTHRITIS
     Route: 048
     Dates: start: 20010724, end: 20010801
  2. VIOXX [Suspect]
     Route: 065
     Dates: start: 20010910
  3. ADVIL [Concomitant]
     Route: 065
  4. CORTISONE (CORTISONE ACETATE) [Concomitant]
     Route: 065
  5. PREVACID [Concomitant]
     Route: 065
  6. ESTROGENS (UNSPECIFIED) [Concomitant]
     Route: 065
  7. VASOTEC RPD [Concomitant]
     Route: 048
  8. EPHEDRINE [Concomitant]
     Route: 065

REACTIONS (17)
  - ANGINA PECTORIS [None]
  - ARTERIAL OCCLUSIVE DISEASE [None]
  - BACK PAIN [None]
  - CARPAL TUNNEL SYNDROME [None]
  - CERVIX DISORDER [None]
  - CHEST PAIN [None]
  - CORONARY ARTERY DISEASE [None]
  - HERNIA [None]
  - HYPERLIPIDAEMIA [None]
  - HYPERTENSION [None]
  - MUSCLE SPASMS [None]
  - NEURITIS [None]
  - OEDEMA PERIPHERAL [None]
  - PAIN IN EXTREMITY [None]
  - PARAESTHESIA [None]
  - RASH PRURITIC [None]
  - THROMBOSIS [None]
